FAERS Safety Report 15187097 (Version 1)
Quarter: 2018Q3

REPORT INFORMATION
  Report Type: Report from Study
  Country: US (occurrence: US)
  Receive Date: 20180723
  Receipt Date: 20180723
  Transmission Date: 20181010
  Serious: No
  Sender: FDA-Public Use
  Company Number: US-EXELIXIS-CABO-17011652

PATIENT
  Sex: Male

DRUGS (16)
  1. ANALPRAM HC [Concomitant]
     Active Substance: HYDROCORTISONE ACETATE\PRAMOXINE HYDROCHLORIDE
  2. CABOMETYX [Suspect]
     Active Substance: CABOZANTINIB S-MALATE
     Indication: RENAL CANCER
     Dosage: 60 MG, QD
     Route: 048
     Dates: start: 20171107
  3. SINGULAIR [Concomitant]
     Active Substance: MONTELUKAST SODIUM
  4. MORPHINE [Concomitant]
     Active Substance: MORPHINE
  5. HYDROCHLOROTH [Concomitant]
     Active Substance: HYDROCHLOROTHIAZIDE
  6. METFORMIN [Concomitant]
     Active Substance: METFORMIN HYDROCHLORIDE
  7. LISINOPRIL. [Concomitant]
     Active Substance: LISINOPRIL
  8. NEURONTIN [Concomitant]
     Active Substance: GABAPENTIN
  9. DIFLUNISAL. [Concomitant]
     Active Substance: DIFLUNISAL
  10. IPRATROPIUM [Concomitant]
     Active Substance: IPRATROPIUM
  11. CABOMETYX [Suspect]
     Active Substance: CABOZANTINIB S-MALATE
     Dosage: 20 MG, QD
     Route: 048
  12. METOPROLOL. [Concomitant]
     Active Substance: METOPROLOL
  13. ONDANSETRON [Concomitant]
     Active Substance: ONDANSETRON
  14. ASPIRIN. [Concomitant]
     Active Substance: ASPIRIN
  15. NORVASC [Concomitant]
     Active Substance: AMLODIPINE BESYLATE
  16. ATORVASTATIN [Concomitant]
     Active Substance: ATORVASTATIN

REACTIONS (1)
  - Palmar-plantar erythrodysaesthesia syndrome [Unknown]
